FAERS Safety Report 7492592-3 (Version None)
Quarter: 2011Q2

REPORT INFORMATION
  Report Type: 
  Country: None (occurrence: None)
  Receive Date: 20110519
  Receipt Date: 20110511
  Transmission Date: 20111010
  Serious: Yes (Death, Other)
  Sender: FDA-Public Use
  Company Number: US-NAPPMUNDI-GBR-2011-0008216

PATIENT
  Age: 57 Year
  Sex: Male
  Weight: 63.492 kg

DRUGS (1)
  1. MORPHINE SULFATE [Suspect]
     Indication: PRODUCT USED FOR UNKNOWN INDICATION
     Route: 065

REACTIONS (4)
  - DRUG LEVEL [None]
  - COUGH [None]
  - HYPERHIDROSIS [None]
  - DYSPNOEA [None]
